FAERS Safety Report 10650464 (Version 1)
Quarter: 2014Q4

REPORT INFORMATION
  Report Type: Spontaneous
  Country: US (occurrence: US)
  Receive Date: 20141213
  Receipt Date: 20141213
  Transmission Date: 20150529
  Serious: No
  Sender: FDA-Public Use
  Company Number: US-BAUSCH-BL-2014-004720

PATIENT
  Age: 54 Year
  Sex: Male

DRUGS (5)
  1. XENAZINE [Suspect]
     Active Substance: TETRABENAZINE
     Indication: HUNTINGTON^S DISEASE
     Route: 048
     Dates: start: 201406
  2. XENAZINE [Suspect]
     Active Substance: TETRABENAZINE
     Route: 048
     Dates: start: 201408
  3. XENAZINE [Suspect]
     Active Substance: TETRABENAZINE
     Indication: TREMOR
     Dosage: 25MG 1.5 TABLETS IN THE MORNING AND 25MG IN THE EVENING
     Route: 048
     Dates: start: 20140819
  4. ALLEGRA [Concomitant]
     Active Substance: FEXOFENADINE HYDROCHLORIDE
     Indication: PRODUCT USED FOR UNKNOWN INDICATION
  5. ADVIL [Concomitant]
     Active Substance: IBUPROFEN
     Indication: PRODUCT USED FOR UNKNOWN INDICATION

REACTIONS (2)
  - Movement disorder [Unknown]
  - Vomiting [Not Recovered/Not Resolved]

NARRATIVE: CASE EVENT DATE: 201408
